FAERS Safety Report 9443116 (Version 1)
Quarter: 2013Q3

REPORT INFORMATION
  Report Type: Spontaneous
  Country: FR (occurrence: FR)
  Receive Date: 20130806
  Receipt Date: 20130806
  Transmission Date: 20140515
  Serious: Yes (Hospitalization, Other)
  Sender: FDA-Public Use
  Company Number: FR-WATSON-2013-13212

PATIENT
  Age: 54 Year
  Sex: Male

DRUGS (7)
  1. BACLOFEN (UNKNOWN) [Suspect]
     Indication: ALCOHOL WITHDRAWAL SYNDROME
     Dosage: 450 MG, DAILY
     Route: 065
  2. SEROPLEX [Concomitant]
     Indication: PRODUCT USED FOR UNKNOWN INDICATION
     Dosage: UNK
     Route: 065
  3. TAHOR [Concomitant]
     Indication: PRODUCT USED FOR UNKNOWN INDICATION
     Dosage: UNK
     Route: 065
  4. CARDENSIEL [Concomitant]
     Indication: PRODUCT USED FOR UNKNOWN INDICATION
     Dosage: UNK
     Route: 065
  5. LASILIX                            /00032601/ [Concomitant]
     Indication: PRODUCT USED FOR UNKNOWN INDICATION
     Dosage: UNK
     Route: 065
  6. REVIA [Concomitant]
     Indication: PRODUCT USED FOR UNKNOWN INDICATION
     Dosage: UNK
     Route: 065
  7. AOTAL [Concomitant]
     Indication: PRODUCT USED FOR UNKNOWN INDICATION
     Dosage: UNK
     Route: 065

REACTIONS (9)
  - Respiratory depression [Recovered/Resolved]
  - Respiratory acidosis [Recovered/Resolved]
  - Muscle contractions involuntary [Recovered/Resolved]
  - Myoclonus [Recovered/Resolved]
  - Agitation [Recovered/Resolved]
  - Confusional state [Recovered/Resolved]
  - Cough [Recovered/Resolved]
  - Bradypnoea [Recovered/Resolved]
  - Overdose [Recovered/Resolved]
